FAERS Safety Report 4779716-3 (Version None)
Quarter: 2005Q3

REPORT INFORMATION
  Report Type: 
  Country: None (occurrence: None)
  Receive Date: 20050927
  Receipt Date: 20050916
  Transmission Date: 20060218
  Serious: Yes (Hospitalization)
  Sender: FDA-Public Use
  Company Number: PT-AMGEN-UK150832

PATIENT
  Sex: Male
  Weight: 64.5 kg

DRUGS (9)
  1. ARANESP [Suspect]
     Indication: RENAL FAILURE CHRONIC
     Route: 042
     Dates: start: 20040721
  2. AMLODIPINE [Concomitant]
     Route: 048
     Dates: start: 20040721
  3. CARVEDILOL [Concomitant]
     Route: 048
     Dates: start: 20040721
  4. RILMENIDINE [Concomitant]
     Route: 048
     Dates: start: 20040721
  5. PARICALCITOL [Concomitant]
     Route: 042
     Dates: start: 20050201
  6. ASPIRIN [Concomitant]
     Route: 048
     Dates: start: 20040721
  7. VANCOMYCIN [Concomitant]
     Route: 048
     Dates: start: 20050723, end: 20050827
  8. TICLODIPINE [Concomitant]
     Route: 048
     Dates: start: 20040721
  9. PENTOXIFYLLINE [Concomitant]
     Route: 048
     Dates: start: 20050721

REACTIONS (4)
  - CATHETER RELATED INFECTION [None]
  - HAEMODIALYSIS [None]
  - STAPHYLOCOCCAL INFECTION [None]
  - THERAPEUTIC RESPONSE DECREASED [None]
